FAERS Safety Report 24578555 (Version 1)
Quarter: 2024Q4

REPORT INFORMATION
  Report Type: Spontaneous
  Country: IT (occurrence: IT)
  Receive Date: 20241105
  Receipt Date: 20241105
  Transmission Date: 20250114
  Serious: Yes (Death, Hospitalization)
  Sender: ACCORD
  Company Number: None

PATIENT
  Age: 65 Year
  Sex: Female
  Weight: 80 kg

DRUGS (1)
  1. PACLITAXEL [Suspect]
     Active Substance: PACLITAXEL
     Indication: Triple negative breast cancer
     Dosage: I CYCLE: 175MG/M2 (320MG)/3 WEEKS
     Dates: start: 20241004, end: 20241004

REACTIONS (1)
  - Cardio-respiratory arrest [Fatal]

NARRATIVE: CASE EVENT DATE: 20241004
